FAERS Safety Report 6961652-5 (Version None)
Quarter: 2010Q3

REPORT INFORMATION
  Report Type: 
  Country: None (occurrence: None)
  Receive Date: 20100901
  Receipt Date: 20100827
  Transmission Date: 20110219
  Serious: Yes (Other)
  Sender: FDA-Public Use
  Company Number: CHPA2010US13814

PATIENT
  Age: 67 Year
  Sex: Female

DRUGS (4)
  1. MAALOX ANTACID/ANTIGAS MAX QDTABS ASST (NCH) [Suspect]
     Indication: DYSPEPSIA
     Dosage: 2-4 DF, QD
     Route: 048
  2. MAALOX ANTACID/ANTIGAS MAX QDTABS ASST (NCH) [Suspect]
     Indication: FLATULENCE
  3. MAALOX ANTACID/ANTIGAS MAX QDTABS ASST (NCH) [Suspect]
  4. NEXIUM [Concomitant]
     Dosage: UNK, UNK

REACTIONS (5)
  - CONDITION AGGRAVATED [None]
  - DYSPEPSIA [None]
  - FLATULENCE [None]
  - LUNG NEOPLASM MALIGNANT [None]
  - METASTASES TO CENTRAL NERVOUS SYSTEM [None]
